FAERS Safety Report 8578995-4 (Version None)
Quarter: 2012Q3

REPORT INFORMATION
  Report Type: 
  Country: None (occurrence: None)
  Receive Date: 20120808
  Receipt Date: 20120801
  Transmission Date: 20120928
  Serious: Yes (Hospitalization)
  Sender: FDA-Public Use
  Company Number: DE-PFIZER INC-2012187666

PATIENT

DRUGS (1)
  1. CLINDAMYCIN HCL [Suspect]

REACTIONS (3)
  - PAROSMIA [None]
  - VOMITING [None]
  - DYSGEUSIA [None]
